FAERS Safety Report 8153327-4 (Version None)
Quarter: 2012Q1

REPORT INFORMATION
  Report Type: 
  Country: None (occurrence: None)
  Receive Date: 20120221
  Receipt Date: 20120209
  Transmission Date: 20120608
  Serious: No
  Sender: FDA-Public Use
  Company Number: US-ELI_LILLY_AND_COMPANY-US201202003863

PATIENT
  Sex: Female

DRUGS (2)
  1. CYMBALTA [Suspect]
     Dosage: UNK, UNKNOWN
  2. DEPAKOTE [Concomitant]

REACTIONS (2)
  - HEPATIC ENZYME INCREASED [None]
  - ALANINE AMINOTRANSFERASE INCREASED [None]
